FAERS Safety Report 7471559-5 (Version None)
Quarter: 2011Q2

REPORT INFORMATION
  Report Type: 
  Country: None (occurrence: None)
  Receive Date: 20110511
  Receipt Date: 20110331
  Transmission Date: 20111010
  Serious: Yes (Other)
  Sender: FDA-Public Use
  Company Number: US-BAYER-201029551NA

PATIENT
  Age: 30 Year
  Sex: Female
  Weight: 56.689 kg

DRUGS (4)
  1. DROSPIRENONE AND ETHINYL ESTRADIOL [Suspect]
     Dosage: UNK
     Route: 048
     Dates: start: 20060101, end: 20090101
  2. YAZ [Suspect]
     Dosage: UNK
     Dates: start: 20060101, end: 20090101
  3. YASMIN [Suspect]
     Dosage: UNK
     Dates: start: 20060101, end: 20090101
  4. DROSPIRENONE AND ETHINYL ESTRADIOL [Suspect]
     Dosage: UNK
     Dates: start: 20090104, end: 20090529

REACTIONS (3)
  - CHOLECYSTITIS CHRONIC [None]
  - EMOTIONAL DISTRESS [None]
  - GALLBLADDER DISORDER [None]
